FAERS Safety Report 17414200 (Version 3)
Quarter: 2020Q1

REPORT INFORMATION
  Report Type: Spontaneous
  Country: US (occurrence: US)
  Receive Date: 20200213
  Receipt Date: 20200310
  Transmission Date: 20200409
  Serious: Yes (Hospitalization, Other)
  Sender: FDA-Public Use
  Company Number: US-SUNOVION-2020SUN000456

PATIENT
  Age: 59 Year
  Sex: Female

DRUGS (2)
  1. LONHALA MAGNAIR [Suspect]
     Active Substance: GLYCOPYRROLATE
     Indication: CHRONIC OBSTRUCTIVE PULMONARY DISEASE
     Dosage: 25 ?G/1ML, BID
     Route: 055
  2. LONHALA MAGNAIR [Suspect]
     Active Substance: GLYCOPYRROLATE
     Dosage: 25 ?G/1ML UNK
     Route: 055

REACTIONS (6)
  - Pneumonia [Unknown]
  - Chronic obstructive pulmonary disease [Unknown]
  - Infection [Unknown]
  - Systemic lupus erythematosus [Unknown]
  - Pyrexia [Unknown]
  - Dyspnoea [Unknown]
